FAERS Safety Report 5938677-1 (Version None)
Quarter: 2008Q4

REPORT INFORMATION
  Report Type: 
  Country: None (occurrence: None)
  Receive Date: 20081103
  Receipt Date: 20081030
  Transmission Date: 20090506
  Serious: Yes (Other)
  Sender: FDA-Public Use
  Company Number: AU-MERCK-0810AUS00161

PATIENT
  Age: 72 Year
  Sex: Male
  Weight: 70 kg

DRUGS (8)
  1. FOSAMAX [Suspect]
     Route: 048
  2. PREDNISONE TAB [Suspect]
     Route: 065
  3. CALCIUM CARBONATE AND CHOLECALCIFEROL [Concomitant]
     Route: 065
  4. FUROSEMIDE SODIUM [Concomitant]
     Route: 065
  5. ATORVASTATIN CALCIUM [Concomitant]
     Route: 065
  6. FLUTICASONE PROPIONATE AND SALMETEROL XINAFOATE [Concomitant]
     Route: 065
  7. TIOTROPIUM BROMIDE [Concomitant]
     Route: 065
  8. ALBUTEROL SULFATE [Concomitant]
     Route: 065

REACTIONS (2)
  - ARTHRALGIA [None]
  - OSTEONECROSIS [None]
